FAERS Safety Report 7804204-7 (Version None)
Quarter: 2011Q4

REPORT INFORMATION
  Report Type: 
  Country: None (occurrence: None)
  Receive Date: 20111010
  Receipt Date: 20110927
  Transmission Date: 20120403
  Serious: Yes (Other)
  Sender: FDA-Public Use
  Company Number: KR-JNJFOC-20070403173

PATIENT
  Sex: Female
  Weight: 55.3 kg

DRUGS (39)
  1. METHOTREXATE [Suspect]
     Dosage: WEEK 11  8 CAPSULES
     Route: 048
     Dates: start: 20061213
  2. METHOTREXATE [Suspect]
     Dosage: WEEK 15  8 CAPSULES
     Route: 048
     Dates: start: 20070110
  3. METHOTREXATE [Suspect]
     Dosage: WEEK 21  8 CAPSULES
     Route: 048
     Dates: start: 20070221
  4. METHOTREXATE [Suspect]
     Dosage: WEEK 25  8 CAPSULES
     Route: 048
     Dates: start: 20070321
  5. METHOTREXATE [Suspect]
     Dosage: WEEK 5  6 CAPSULES
     Route: 048
     Dates: start: 20061101
  6. GOLIMUMAB [Suspect]
     Route: 058
  7. METHOTREXATE [Suspect]
     Dosage: WEEK 7  6 CAPSULES
     Route: 048
     Dates: start: 20061115
  8. METHOTREXATE [Suspect]
     Route: 048
     Dates: start: 20070412
  9. METHOTREXATE [Suspect]
     Dosage: WEEK 2  4 CAPSULES
     Route: 048
     Dates: start: 20061011
  10. METHOTREXATE [Suspect]
     Dosage: WEEK 22  8 CAPSULES
     Route: 048
     Dates: start: 20070228
  11. METHOTREXATE [Suspect]
     Dosage: WEEK 1  4 CAPSULES
     Route: 048
     Dates: start: 20061004
  12. PYRIDOXINE HYDROCHLORIDE [Concomitant]
     Route: 048
     Dates: start: 20060901
  13. FOLIC ACID [Concomitant]
     Route: 048
     Dates: start: 20060927
  14. METHOTREXATE [Suspect]
     Dosage: WEEK 8  8 CAPSULES
     Route: 048
     Dates: start: 20061122
  15. METHOTREXATE [Suspect]
     Dosage: WEEK10  8 CAPSULES
     Route: 048
     Dates: start: 20061206
  16. METHOTREXATE [Suspect]
     Dosage: WEEK 12  8 CAPSULES
     Route: 048
     Dates: start: 20061220
  17. METHOTREXATE [Suspect]
     Dosage: WEEK 17  8 CAPSULES
     Route: 048
     Dates: start: 20070124
  18. METHOTREXATE [Suspect]
     Dosage: WEEK 20  8 CAPSULES
     Route: 048
     Dates: start: 20070214
  19. METHOTREXATE [Suspect]
     Dosage: WEEK 24  8 CAPSULES
     Route: 048
     Dates: start: 20070314
  20. METHOTREXATE [Suspect]
     Dosage: WEEK 26  8 CAPSULES
     Route: 048
     Dates: start: 20070328
  21. METHOTREXATE [Suspect]
     Dosage: WEEK 27  8 CAPSULES
     Route: 048
     Dates: start: 20070404
  22. METHOTREXATE [Suspect]
     Dosage: WEEK 4  6 CAPSULES
     Route: 048
     Dates: start: 20061025
  23. METHOTREXATE [Suspect]
     Dosage: WEEK 3  4 CAPSULES
     Route: 048
     Dates: start: 20061018
  24. LSONICOTINIC ACID HYDRAZID [Concomitant]
     Route: 048
     Dates: start: 20060901
  25. GOLIMUMAB [Suspect]
     Indication: RHEUMATOID ARTHRITIS
     Route: 058
     Dates: start: 20070413
  26. METHOTREXATE [Suspect]
     Dosage: WEEK 13  8 CAPSULES
     Route: 048
     Dates: start: 20061227
  27. METHOTREXATE [Suspect]
     Dosage: WEEK 14  8 CAPSULES
     Route: 048
     Dates: start: 20070103
  28. METHOTREXATE [Suspect]
     Dosage: WEEK 16  8 CAPSULES
     Route: 048
     Dates: start: 20070117
  29. METHOTREXATE [Suspect]
     Route: 048
     Dates: start: 20070418
  30. CELECOXIB [Concomitant]
     Route: 048
     Dates: start: 20060715
  31. PREDNISOLONE [Concomitant]
     Route: 048
     Dates: start: 20060707
  32. METHOTREXATE [Suspect]
     Dosage: WEEK 23  8 CAPSULES
     Route: 048
     Dates: start: 20070307
  33. METHOTREXATE [Suspect]
     Dosage: WEEK 18  8 CAPSULES
     Route: 048
     Dates: start: 20070131
  34. ULTRACET [Concomitant]
     Route: 048
     Dates: start: 20060707
  35. OMEPRAZOLE [Concomitant]
     Route: 048
     Dates: start: 20070316
  36. METHOTREXATE [Suspect]
     Indication: RHEUMATOID ARTHRITIS
     Dosage: WEEK 6  6 CAPSULES
     Route: 048
     Dates: start: 20061108
  37. METHOTREXATE [Suspect]
     Dosage: WEEK 9  8 CAPSULES
     Route: 048
     Dates: start: 20061129
  38. METHOTREXATE [Suspect]
     Dosage: WEEK 19  8 CAPSULES
     Route: 048
     Dates: start: 20070207
  39. METHOTREXATE [Suspect]
     Dosage: WEEK 0   4 CAPSULES
     Route: 048
     Dates: start: 20060927

REACTIONS (2)
  - THYROID CANCER [None]
  - LUNG NEOPLASM [None]
